FAERS Safety Report 4782306-X (Version None)
Quarter: 2005Q3

REPORT INFORMATION
  Report Type: 
  Country: None (occurrence: None)
  Receive Date: 20050914
  Receipt Date: 20050511
  Transmission Date: 20060218
  Serious: Yes (Death)
  Sender: FDA-Public Use
  Company Number: 163-20785-05050207

PATIENT
  Age: 56 Year
  Sex: Male

DRUGS (4)
  1. THALOMID [Suspect]
     Indication: GLIOBLASTOMA
     Dosage: 200 MG DAILY ORAL
     Route: 048
     Dates: start: 20050301, end: 20050329
  2. TEMODAR [Concomitant]
  3. IRINOTECAN HCL [Concomitant]
  4. CCNU (LOMUSTINE) [Concomitant]

REACTIONS (2)
  - DEATH [None]
  - DISEASE PROGRESSION [None]
